FAERS Safety Report 17288509 (Version 3)
Quarter: 2020Q1

REPORT INFORMATION
  Report Type: Spontaneous
  Country: BR (occurrence: BR)
  Receive Date: 20200120
  Receipt Date: 20200313
  Transmission Date: 20200409
  Serious: Yes (Other)
  Sender: FDA-Public Use
  Company Number: BR-PFIZER INC-2015178592

PATIENT
  Age: 75 Year
  Sex: Male

DRUGS (1)
  1. GENOTROPIN [Suspect]
     Active Substance: SOMATROPIN
     Indication: HORMONE REPLACEMENT THERAPY
     Dosage: UNK
     Dates: end: 2019

REACTIONS (3)
  - Malaise [Unknown]
  - Dementia [Unknown]
  - Drug ineffective [Unknown]
